FAERS Safety Report 15007972 (Version 1)
Quarter: 2018Q2

REPORT INFORMATION
  Report Type: Spontaneous
  Country: US (occurrence: US)
  Receive Date: 20180613
  Receipt Date: 20180613
  Transmission Date: 20180711
  Serious: No
  Sender: FDA-Public Use
  Company Number: US-PERRIGO-17US025043

PATIENT
  Age: 58 Year
  Sex: Female
  Weight: 73.92 kg

DRUGS (1)
  1. LANSOPRAZOLE. [Suspect]
     Active Substance: LANSOPRAZOLE
     Indication: DYSPEPSIA
     Dosage: 30 MG, QD
     Route: 048
     Dates: start: 20170701, end: 20170709

REACTIONS (6)
  - Headache [Recovering/Resolving]
  - Nausea [Recovering/Resolving]
  - Asthenia [Recovering/Resolving]
  - Dizziness [Recovering/Resolving]
  - Breath odour [Recovering/Resolving]
  - Incorrect dose administered [Recovered/Resolved]

NARRATIVE: CASE EVENT DATE: 20170701
